FAERS Safety Report 8032490-X (Version None)
Quarter: 2011Q4

REPORT INFORMATION
  Report Type: 
  Country: None (occurrence: None)
  Receive Date: 20111223
  Receipt Date: 20111213
  Transmission Date: 20120403
  Serious: Yes (Hospitalization)
  Sender: FDA-Public Use
  Company Number: 2011SP058206

PATIENT
  Age: 58 Year
  Sex: Male

DRUGS (4)
  1. CITALOPRAM [Concomitant]
  2. VICTRELIS [Suspect]
     Indication: HEPATITIS C
     Dosage: 800 MG;TID
     Dates: start: 20110901
  3. PEGASYS [Suspect]
     Indication: PRODUCT USED FOR UNKNOWN INDICATION
     Dates: start: 20110801
  4. RIBAVIRIN [Suspect]
     Indication: PRODUCT USED FOR UNKNOWN INDICATION
     Dates: start: 20110801

REACTIONS (6)
  - RED BLOOD CELL COUNT DECREASED [None]
  - TRANSFUSION RELATED COMPLICATION [None]
  - NO THERAPEUTIC RESPONSE [None]
  - CONVULSION [None]
  - DEPRESSION [None]
  - WHITE BLOOD CELL COUNT DECREASED [None]
